FAERS Safety Report 4625580-2 (Version None)
Quarter: 2005Q1

REPORT INFORMATION
  Report Type: 
  Country: None (occurrence: None)
  Receive Date: 20050330
  Receipt Date: 20050311
  Transmission Date: 20050727
  Serious: Yes (Death, Other)
  Sender: FDA-Public Use
  Company Number: CA_050307845

PATIENT
  Age: 61 Year
  Sex: Female
  Weight: 73 kg

DRUGS (12)
  1. XIGRIS [Suspect]
     Indication: SEPSIS
     Dosage: 24 UG/KG/HR/I
     Dates: start: 20050310, end: 20050310
  2. CEFTRIAXONE [Concomitant]
  3. HEPARIN [Concomitant]
  4. VANCOMYCIN [Concomitant]
  5. MOXIFLOXACIN HCL [Concomitant]
  6. MORPHINE [Concomitant]
  7. VASOPRESSIN INJECTION [Concomitant]
  8. NOREPINEPHRINE [Concomitant]
  9. LEVOTHYROXINE [Concomitant]
  10. FLUCORTISONE [Concomitant]
  11. HYDROCHORTISONE (HYDROCORTISONE) [Concomitant]
  12. TETRAZEPAM [Concomitant]

REACTIONS (6)
  - NERVOUS SYSTEM DISORDER [None]
  - PLATELET COUNT DECREASED [None]
  - PNEUMONIA [None]
  - PUPIL FIXED [None]
  - SEPTIC SHOCK [None]
  - SYSTEMIC INFLAMMATORY RESPONSE SYNDROME [None]
